FAERS Safety Report 21244851 (Version 2)
Quarter: 2022Q3

REPORT INFORMATION
  Report Type: Spontaneous
  Country: CH (occurrence: CH)
  Receive Date: 20220823
  Receipt Date: 20220824
  Transmission Date: 20221027
  Serious: Yes (Hospitalization, Other)
  Sender: FDA-Public Use
  Company Number: CH-ACERUSPHRM-2022-CH-000001

PATIENT
  Age: 40 Year
  Sex: Male

DRUGS (5)
  1. TESTOSTERONE [Suspect]
     Active Substance: TESTOSTERONE
     Indication: Product use in unapproved indication
  2. NANDROLONE [Suspect]
     Active Substance: NANDROLONE
     Indication: Product use in unapproved indication
  3. METHANDROSTENOLONE [Suspect]
     Active Substance: METHANDROSTENOLONE
     Indication: Product use in unapproved indication
  4. STANOZOLOL [Suspect]
     Active Substance: STANOZOLOL
     Indication: Product use in unapproved indication
  5. HYDROCORTISONE [Concomitant]
     Active Substance: HYDROCORTISONE
     Indication: Adrenocorticotropic hormone deficiency

REACTIONS (2)
  - Pituitary apoplexy [Recovering/Resolving]
  - Leukocytosis [Unknown]
